FAERS Safety Report 12803932 (Version 3)
Quarter: 2019Q1

REPORT INFORMATION
  Report Type: Spontaneous
  Country: TR (occurrence: TR)
  Receive Date: 20161003
  Receipt Date: 20190301
  Transmission Date: 20190417
  Serious: Yes (Other)
  Sender: FDA-Public Use
  Company Number: TR-PFIZER INC-2016456541

PATIENT
  Age: 36 Year
  Sex: Male

DRUGS (3)
  1. AMOXICILLIN. [Suspect]
     Active Substance: AMOXICILLIN
     Dosage: 2 DF, UNK
  2. IBUPROFEN. [Suspect]
     Active Substance: IBUPROFEN
     Dosage: 2 UNK, UNK
  3. CEFAZOLIN [Suspect]
     Active Substance: CEFAZOLIN
     Dosage: 1 DF, UNK

REACTIONS (1)
  - Kounis syndrome [Unknown]
